FAERS Safety Report 9744823 (Version 1)
Quarter: 2013Q4

REPORT INFORMATION
  Report Type: Spontaneous
  Country: JP (occurrence: JP)
  Receive Date: 20131211
  Receipt Date: 20131211
  Transmission Date: 20140711
  Serious: Yes (Other)
  Sender: FDA-Public Use
  Company Number: JP-009507513-1312JPN004065

PATIENT
  Age: 22 Year
  Sex: Female
  Weight: 50 kg

DRUGS (4)
  1. GASTER [Suspect]
     Indication: SUICIDE ATTEMPT
     Dosage: 40 MG DAILY DOSE
     Route: 048
     Dates: start: 20131203, end: 20131203
  2. COLONEL [Suspect]
     Indication: SUICIDE ATTEMPT
     Dosage: 4000 MG DAILY
     Route: 048
     Dates: start: 20131203, end: 20131203
  3. COUGH, COLD, AND FLU THERAPIES (UNSPECIFIED) [Concomitant]
     Indication: SUICIDE ATTEMPT
     Dosage: UNK
     Route: 048
     Dates: start: 20131203, end: 20131203
  4. ANALGESIC (UNSPECIFIED) [Concomitant]
     Indication: SUICIDE ATTEMPT
     Dosage: UNK
     Route: 048
     Dates: start: 20131203, end: 20131203

REACTIONS (3)
  - Suicide attempt [Unknown]
  - Somnolence [Unknown]
  - Intentional overdose [Unknown]
